FAERS Safety Report 16093703 (Version 1)
Quarter: 2019Q1

REPORT INFORMATION
  Report Type: Spontaneous
  Country: US (occurrence: US)
  Receive Date: 20190320
  Receipt Date: 20190320
  Transmission Date: 20190418
  Serious: No
  Sender: FDA-Public Use
  Company Number: US-AUROBINDO-AUR-APL-2018-016786

PATIENT
  Age: 36 Year
  Sex: Male
  Weight: 92.97 kg

DRUGS (1)
  1. LAMOTRIGINE TABLETS 25 MG [Suspect]
     Active Substance: LAMOTRIGINE
     Indication: SEIZURE
     Dosage: 25 MILLIGRAM, TWO TIMES A DAY
     Route: 048

REACTIONS (1)
  - False positive investigation result [Not Recovered/Not Resolved]
